FAERS Safety Report 15346306 (Version 3)
Quarter: 2022Q4

REPORT INFORMATION
  Report Type: Report from Study
  Country: US (occurrence: US)
  Receive Date: 20180904
  Receipt Date: 20221018
  Transmission Date: 20230112
  Serious: Yes (Hospitalization, Other)
  Sender: FDA-Public Use
  Company Number: US-BRISTOL-MYERS SQUIBB COMPANY-BMS-2018-081057

PATIENT
  Age: 58 Year
  Sex: Male
  Weight: 64.9 kg

DRUGS (6)
  1. CISPLATIN [Suspect]
     Active Substance: CISPLATIN
     Indication: Small cell lung cancer
     Dosage: 75 MG/M2, UNK
     Route: 042
     Dates: start: 20180620
  2. CISPLATIN [Suspect]
     Active Substance: CISPLATIN
     Dosage: ON DAY 1
     Route: 042
     Dates: start: 20180808
  3. ETOPOSIDE [Suspect]
     Active Substance: ETOPOSIDE
     Indication: Small cell lung cancer
     Dosage: 100 MG/M2, UNK
     Route: 042
     Dates: start: 20180620
  4. ETOPOSIDE [Suspect]
     Active Substance: ETOPOSIDE
     Route: 042
     Dates: start: 20180808
  5. NIVOLUMAB [Suspect]
     Active Substance: NIVOLUMAB
     Indication: Small cell lung cancer
     Dosage: 360 MG, UNK
     Route: 042
     Dates: start: 20180620
  6. NIVOLUMAB [Suspect]
     Active Substance: NIVOLUMAB
     Dosage: 360 MG, UNK
     Route: 042
     Dates: start: 20180808

REACTIONS (3)
  - Pleural effusion [Recovering/Resolving]
  - Pneumothorax [Recovering/Resolving]
  - Empyema [Unknown]

NARRATIVE: CASE EVENT DATE: 20180809
